FAERS Safety Report 25340617 (Version 3)
Quarter: 2025Q3

REPORT INFORMATION
  Report Type: Report from Study
  Country: US (occurrence: US)
  Receive Date: 20250521
  Receipt Date: 20250810
  Transmission Date: 20251020
  Serious: Yes (Other)
  Sender: ALEXION PHARMACEUTICALS
  Company Number: 202503USA028583US

PATIENT
  Sex: Male

DRUGS (2)
  1. FASENRA [Suspect]
     Active Substance: BENRALIZUMAB
     Indication: Asthma
     Dosage: 30 MILLIGRAM, Q8W
     Dates: start: 20250312
  2. FASENRA [Suspect]
     Active Substance: BENRALIZUMAB

REACTIONS (3)
  - Inappropriate schedule of product administration [Unknown]
  - Excessive cerumen production [Unknown]
  - Deafness unilateral [Unknown]
